FAERS Safety Report 18510366 (Version 2)
Quarter: 2020Q4

REPORT INFORMATION
  Report Type: Report from Study
  Country: US (occurrence: US)
  Receive Date: 20201117
  Receipt Date: 20201127
  Transmission Date: 20210114
  Serious: Yes (Hospitalization, Other)
  Sender: FDA-Public Use
  Company Number: US-GILEAD-2020-0504566

PATIENT
  Age: 49 Year
  Sex: Female

DRUGS (4)
  1. ADCIRCA [Concomitant]
     Active Substance: TADALAFIL
     Indication: PULMONARY HYPERTENSION
     Dosage: 40 MG, QD
     Dates: start: 20190515
  2. AMBRISENTAN [Suspect]
     Active Substance: AMBRISENTAN
     Indication: SCLERODERMA
  3. AMBRISENTAN [Suspect]
     Active Substance: AMBRISENTAN
     Indication: PULMONARY ARTERIAL HYPERTENSION
     Dosage: 10 MG, QD
     Route: 065
     Dates: start: 20190515, end: 202011
  4. ADCIRCA [Concomitant]
     Active Substance: TADALAFIL
     Indication: SCLERODERMA

REACTIONS (3)
  - Intentional dose omission [Not Recovered/Not Resolved]
  - Rash [Unknown]
  - Scleroderma [Unknown]

NARRATIVE: CASE EVENT DATE: 202011
